FAERS Safety Report 9758865 (Version 1)
Quarter: 2013Q4

REPORT INFORMATION
  Report Type: Spontaneous
  Country: US (occurrence: None)
  Receive Date: 20131216
  Receipt Date: 20131216
  Transmission Date: 20140711
  Serious: Yes (Other)
  Sender: FDA-Public Use
  Company Number: 163-POMAL-13042248(1)

PATIENT
  Age: 49 Year
  Sex: Female
  Weight: 43 kg

DRUGS (1)
  1. POMALYST [Suspect]
     Dosage: 4 MG, 21 IN 28 D, PO?

REACTIONS (3)
  - Night sweats [None]
  - Condition aggravated [None]
  - Insomnia [None]
